FAERS Safety Report 6975999-X (Version None)
Quarter: 2010Q3

REPORT INFORMATION
  Report Type: 
  Country: None (occurrence: None)
  Receive Date: 20100910
  Receipt Date: 20100902
  Transmission Date: 20110219
  Serious: Yes (Hospitalization)
  Sender: FDA-Public Use
  Company Number: US-BAYER-201026654NA

PATIENT
  Age: 34 Year
  Sex: Female
  Weight: 68 kg

DRUGS (5)
  1. MIRENA [Suspect]
     Indication: CONTRACEPTION
     Dosage: FREQUENCY: CONTINUOUS
     Route: 015
     Dates: start: 20081017
  2. IBUPROFEN [Concomitant]
  3. PAIN KILLER [Concomitant]
  4. IRON [Concomitant]
  5. STOOL SOFTER [Concomitant]

REACTIONS (5)
  - ABDOMINAL PAIN [None]
  - BACK PAIN [None]
  - PELVIC PAIN [None]
  - RUPTURED ECTOPIC PREGNANCY [None]
  - VAGINAL HAEMORRHAGE [None]
